FAERS Safety Report 7942511-8 (Version None)
Quarter: 2011Q4

REPORT INFORMATION
  Report Type: 
  Country: None (occurrence: None)
  Receive Date: 20111128
  Receipt Date: 20111116
  Transmission Date: 20120403
  Serious: Yes (Hospitalization)
  Sender: FDA-Public Use
  Company Number: IT-GLAXOSMITHKLINE-B0759740A

PATIENT
  Sex: Male

DRUGS (5)
  1. ESOMEPRAZOLE MAGNESIUM [Suspect]
     Indication: MULTIPLE DRUG OVERDOSE INTENTIONAL
     Dosage: 80MG PER DAY
     Route: 048
     Dates: start: 20110415, end: 20110415
  2. PROPAFENONE HCL [Concomitant]
     Indication: VENTRICULAR EXTRASYSTOLES
  3. ALPRAZOLAM [Suspect]
     Indication: MULTIPLE DRUG OVERDOSE INTENTIONAL
     Dosage: 5MG PER DAY
     Route: 048
     Dates: start: 20110415, end: 20110415
  4. PERIDON [Suspect]
     Indication: MULTIPLE DRUG OVERDOSE INTENTIONAL
     Dosage: 70MG PER DAY
     Route: 048
     Dates: start: 20110415, end: 20110415
  5. PROPAFENONE HCL [Suspect]
     Indication: MULTIPLE DRUG OVERDOSE INTENTIONAL
     Dosage: 1.05G PER DAY
     Route: 048
     Dates: start: 20110415, end: 20110415

REACTIONS (2)
  - MULTIPLE DRUG OVERDOSE INTENTIONAL [None]
  - SOPOR [None]
